FAERS Safety Report 25663952 (Version 2)
Quarter: 2025Q3

REPORT INFORMATION
  Report Type: Report from Study
  Country: EG (occurrence: EG)
  Receive Date: 20250811
  Receipt Date: 20250820
  Transmission Date: 20251021
  Serious: Yes (Hospitalization)
  Sender: NOVARTIS
  Company Number: EG-002147023-NVSC2025EG125369

PATIENT
  Age: 75 Year
  Sex: Male
  Weight: 61 kg

DRUGS (9)
  1. ENTRESTO [Suspect]
     Active Substance: SACUBITRIL\VALSARTAN
     Indication: Cardiac failure
     Dosage: 100 MG, BID (TO ENTRESTO 200 MG WITH REGIMEN HALF TABLET TWICE DAILY
     Route: 048
  2. ENTRESTO [Suspect]
     Active Substance: SACUBITRIL\VALSARTAN
     Dosage: 50 MG, BID (START DATE :7 MONTHS AGO END DATE :2 MONTHS FROM THE START DATE)
     Route: 048
  3. ENTRESTO [Suspect]
     Active Substance: SACUBITRIL\VALSARTAN
     Dosage: 50 MG, BID (HALF TABLET TWICE DAILY (OFF LABEL DOSE), START DATE: 5 MONTHS AGO)
     Route: 048
  4. METOPROLOL SUCCINATE [Concomitant]
     Active Substance: METOPROLOL SUCCINATE
     Indication: Cardiac disorder
     Dosage: UNK, QD (START DATE :7 MONTHS AGO END DATE: ONGOING)
     Route: 048
  5. TORSEMIDE [Concomitant]
     Active Substance: TORSEMIDE
     Indication: Polyuria
     Dosage: UNK, QD (START DATE :7 MONTHS AGO END DATE: ONGOING)
     Route: 048
  6. Empacoza [Concomitant]
     Indication: Diabetes mellitus
     Dosage: UNK, BID (HALF TABLET TWICE DAILY, START DATE :7 MONTHS AGO END DATE: ONGOING)
     Route: 048
  7. Empacoza [Concomitant]
     Indication: Cardiac disorder
  8. Diamicron [Concomitant]
     Indication: Diabetes mellitus
     Dosage: 30 MG, QD (START DATE: 15 YEARS AGO END DATE: ONGOING)
     Route: 048
  9. Diamicron [Concomitant]
     Dosage: 60 MG, QD (START DATE: 15 YEARS AGO END DATE: ONGOING)
     Route: 048

REACTIONS (8)
  - Hypotension [Recovering/Resolving]
  - Hyperhidrosis [Recovering/Resolving]
  - Hypernatraemia [Recovering/Resolving]
  - Dry skin [Recovering/Resolving]
  - Wrong technique in product usage process [Unknown]
  - Fatigue [Recovered/Resolved]
  - Blood potassium increased [Recovered/Resolved]
  - Off label use [Unknown]

NARRATIVE: CASE EVENT DATE: 20250301
